FAERS Safety Report 5787624-4 (Version None)
Quarter: 2008Q2

REPORT INFORMATION
  Report Type: 
  Country: None (occurrence: None)
  Receive Date: 20080625
  Receipt Date: 20070927
  Transmission Date: 20081010
  Serious: No
  Sender: FDA-Public Use
  Company Number: US-ASTRAZENECA-2007UW22835

PATIENT
  Age: 78 Year
  Sex: Female

DRUGS (6)
  1. PULMICORT RESPULES [Suspect]
     Indication: ASTHMA
     Dosage: 0.5MG/2ML
     Route: 055
  2. XOPENEX [Concomitant]
  3. IPRATROPIUM BROMIDE [Concomitant]
  4. NEXIUM [Concomitant]
  5. BELLADONNA [Concomitant]
  6. PREDNISONE [Concomitant]

REACTIONS (2)
  - BLOOD GLUCOSE ABNORMAL [None]
  - NERVOUSNESS [None]
